FAERS Safety Report 25011206 (Version 1)
Quarter: 2025Q1

REPORT INFORMATION
  Report Type: Report from Study
  Country: CA (occurrence: CA)
  Receive Date: 20250226
  Receipt Date: 20250226
  Transmission Date: 20250409
  Serious: Yes (Hospitalization)
  Sender: BOEHRINGER INGELHEIM
  Company Number: CA-BoehringerIngelheim-2024-BI-051616

PATIENT
  Age: 65 Year
  Sex: Male

DRUGS (2)
  1. OFEV [Suspect]
     Active Substance: NINTEDANIB
     Indication: Idiopathic pulmonary fibrosis
  2. ACETYLCYSTEINE [Suspect]
     Active Substance: ACETYLCYSTEINE
     Indication: Cough

REACTIONS (7)
  - Blood sodium decreased [Not Recovered/Not Resolved]
  - Dyspnoea [Not Recovered/Not Resolved]
  - Arthralgia [Not Recovered/Not Resolved]
  - Nausea [Recovered/Resolved]
  - Productive cough [Not Recovered/Not Resolved]
  - Dry throat [Not Recovered/Not Resolved]
  - Vomiting [Recovered/Resolved]
